FAERS Safety Report 9526069 (Version 2)
Quarter: 2013Q3

REPORT INFORMATION
  Report Type: Report from Study
  Country: MX (occurrence: MX)
  Receive Date: 20130916
  Receipt Date: 20130930
  Transmission Date: 20140515
  Serious: Yes (Death, Hospitalization, Other)
  Sender: FDA-Public Use
  Company Number: MX-ROCHE-1276050

PATIENT
  Age: 64 Year
  Sex: Female
  Weight: 78 kg

DRUGS (7)
  1. HERCEPTIN [Suspect]
     Indication: BREAST CANCER
     Route: 042
     Dates: start: 201304, end: 20130509
  2. PACLITAXEL [Suspect]
     Indication: BREAST CANCER
     Route: 042
     Dates: start: 2010, end: 2010
  3. PACLITAXEL [Suspect]
     Route: 042
     Dates: start: 201304, end: 20130509
  4. ONDANSETRON [Concomitant]
     Indication: PROPHYLAXIS
     Route: 048
     Dates: start: 201304
  5. RANITIDINE [Concomitant]
     Indication: PROPHYLAXIS
     Route: 048
     Dates: start: 2013
  6. CHLORPHENAMINE [Concomitant]
     Indication: PROPHYLAXIS
     Route: 048
     Dates: start: 201304
  7. CIPROFLOXACIN [Concomitant]
     Indication: PROPHYLAXIS
     Route: 048
     Dates: start: 201304

REACTIONS (13)
  - Alopecia [Not Recovered/Not Resolved]
  - Ulcer [Not Recovered/Not Resolved]
  - Subcutaneous abscess [Not Recovered/Not Resolved]
  - Helminthic infection [Not Recovered/Not Resolved]
  - Loss of consciousness [Not Recovered/Not Resolved]
  - Dysarthria [Not Recovered/Not Resolved]
  - Oedema peripheral [Not Recovered/Not Resolved]
  - Diarrhoea [Recovered/Resolved]
  - Asthenia [Not Recovered/Not Resolved]
  - Decreased appetite [Not Recovered/Not Resolved]
  - Cardiac arrest [Fatal]
  - Drug hypersensitivity [Recovered/Resolved]
  - Terminal state [Not Recovered/Not Resolved]
